FAERS Safety Report 4971500-0 (Version None)
Quarter: 2006Q2

REPORT INFORMATION
  Report Type: 
  Country: None (occurrence: None)
  Receive Date: 20060413
  Receipt Date: 20060407
  Transmission Date: 20061013
  Serious: Yes (Other)
  Sender: FDA-Public Use
  Company Number: PHBS2006PT05207

PATIENT
  Age: 80 Year
  Sex: Female
  Weight: 60 kg

DRUGS (11)
  1. ZOMETA [Suspect]
     Indication: MULTIPLE MYELOMA
     Route: 042
     Dates: start: 20030101, end: 20060101
  2. PAMIDRONATE DISODIUM [Suspect]
     Indication: MULTIPLE MYELOMA
     Route: 065
     Dates: start: 20020401, end: 20020901
  3. MELPHALAN [Concomitant]
     Route: 048
     Dates: start: 20020401, end: 20031001
  4. MELPHALAN [Concomitant]
     Route: 048
     Dates: start: 20050701
  5. ALLOPURINOL [Concomitant]
     Dosage: 300 MG/D
     Route: 048
     Dates: start: 20020501, end: 20040401
  6. DEXAMETHASONE [Concomitant]
     Route: 048
     Dates: start: 20021001, end: 20031001
  7. DEXAMETHASONE [Concomitant]
     Dates: start: 20050701
  8. PREDNISOLONE [Concomitant]
     Route: 048
     Dates: start: 20020401, end: 20021001
  9. CALCIUM CARBONATE [Concomitant]
     Dosage: 1 G/D
     Route: 048
     Dates: start: 20020901
  10. SUCRALFATE [Concomitant]
     Route: 048
     Dates: start: 20030801
  11. OMEPRAZOLE [Concomitant]
     Dosage: 20 MG/D
     Route: 048
     Dates: start: 20030801

REACTIONS (2)
  - GINGIVAL ULCERATION [None]
  - OSTEONECROSIS [None]
